FAERS Safety Report 8328857-2 (Version None)
Quarter: 2012Q2

REPORT INFORMATION
  Report Type: 
  Country: None (occurrence: None)
  Receive Date: 20120502
  Receipt Date: 20120424
  Transmission Date: 20120825
  Serious: Yes (Hospitalization)
  Sender: FDA-Public Use
  Company Number: JP-VERTEX PHARMACEUTICALS INC.-AE-2012-006091

PATIENT
  Age: 47 Year
  Sex: Male

DRUGS (11)
  1. TELAVIC (TELAPREVIR) [Suspect]
     Indication: HEPATITIS C
     Route: 048
     Dates: start: 20120131, end: 20120306
  2. PEG-INTRON [Concomitant]
     Indication: HEPATITIS C
     Route: 051
     Dates: start: 20120131, end: 20120220
  3. LENDORMIN [Concomitant]
     Route: 048
     Dates: start: 20120214
  4. REBETOL [Concomitant]
     Indication: HEPATITIS C
     Route: 048
     Dates: start: 20120131, end: 20120221
  5. DOMPERIDONE [Concomitant]
     Route: 048
     Dates: start: 20120131
  6. TELAVIC (TELAPREVIR) [Suspect]
     Route: 048
     Dates: start: 20120307, end: 20120424
  7. PEG-INTRON [Concomitant]
     Route: 051
     Dates: start: 20120221
  8. LENDORMIN [Concomitant]
     Route: 048
     Dates: start: 20120131
  9. REBETOL [Concomitant]
     Route: 048
     Dates: start: 20120229
  10. LOXOPROFEN [Concomitant]
     Route: 048
     Dates: start: 20120131
  11. REBETOL [Concomitant]
     Route: 048
     Dates: start: 20120222, end: 20120228

REACTIONS (1)
  - ABDOMINAL DISCOMFORT [None]
